FAERS Safety Report 8027583-7 (Version None)
Quarter: 2012Q1

REPORT INFORMATION
  Report Type: 
  Country: None (occurrence: None)
  Receive Date: 20120104
  Receipt Date: 20111219
  Transmission Date: 20120608
  Serious: Yes (Hospitalization)
  Sender: FDA-Public Use
  Company Number: TPA2011A06100

PATIENT
  Age: 49 Year
  Sex: Male
  Weight: 86.637 kg

DRUGS (4)
  1. IBUPROFEN [Concomitant]
  2. COLCRYS (COLCHICINE) [Concomitant]
  3. INDOMETHACIN [Concomitant]
  4. ULORIC [Suspect]
     Indication: GOUT
     Dosage: 40 MG, 1 IN 1 D, PER ORAL
     Route: 048
     Dates: start: 20110726

REACTIONS (4)
  - CONDITION AGGRAVATED [None]
  - PELVIC PAIN [None]
  - GOUT [None]
  - DYSURIA [None]
